FAERS Safety Report 8360982-2 (Version None)
Quarter: 2012Q2

REPORT INFORMATION
  Report Type: 
  Country: None (occurrence: None)
  Receive Date: 20120515
  Receipt Date: 20120511
  Transmission Date: 20120825
  Serious: No
  Sender: FDA-Public Use
  Company Number: US-PFIZER INC-2012115707

PATIENT
  Sex: Female

DRUGS (1)
  1. NEURONTIN [Suspect]
     Indication: DIABETIC NEUROPATHY
     Dosage: ON AND OFF FOR LAST SEVERAL YEARS

REACTIONS (2)
  - PAIN IN EXTREMITY [None]
  - DRUG INEFFECTIVE [None]
